FAERS Safety Report 9912506 (Version 1)
Quarter: 2014Q1

REPORT INFORMATION
  Report Type: Report from Study
  Country: US (occurrence: US)
  Receive Date: 20140220
  Receipt Date: 20140220
  Transmission Date: 20141002
  Serious: Yes (Other)
  Sender: FDA-Public Use
  Company Number: US-ROCHE-GNE312873

PATIENT
  Age: 76 Year
  Sex: Male

DRUGS (4)
  1. RANIBIZUMAB [Suspect]
     Indication: AGE-RELATED MACULAR DEGENERATION
     Route: 050
     Dates: start: 200909, end: 201103
  2. RANIBIZUMAB [Suspect]
     Route: 050
     Dates: start: 20120521
  3. BEVACIZUMAB [Suspect]
     Indication: PRODUCT USED FOR UNKNOWN INDICATION
     Route: 050
     Dates: start: 20120423, end: 20120423
  4. PRADAXA [Concomitant]

REACTIONS (10)
  - Hordeolum [Recovered/Resolved]
  - Macular degeneration [Unknown]
  - General physical condition abnormal [Unknown]
  - Heart rate irregular [Unknown]
  - Atrial fibrillation [Unknown]
  - Headache [Unknown]
  - Vision blurred [Unknown]
  - Retinal haemorrhage [Unknown]
  - Photopsia [Unknown]
  - Unevaluable event [Unknown]
